FAERS Safety Report 7156298-2 (Version None)
Quarter: 2010Q4

REPORT INFORMATION
  Report Type: 
  Country: None (occurrence: None)
  Receive Date: 20101214
  Receipt Date: 20101206
  Transmission Date: 20110411
  Serious: Yes (Other)
  Sender: FDA-Public Use
  Company Number: DE-AMGEN-DEUSP2010008645

PATIENT

DRUGS (2)
  1. ENBREL [Suspect]
     Indication: PSORIASIS
     Dosage: PREFILLED SYRINGE, 50 MG, UNK
     Dates: end: 20100101
  2. ENBREL [Suspect]
     Indication: PRODUCT USED FOR UNKNOWN INDICATION
     Dosage: PREFILLED PEN, UNK UNK, UNK
     Dates: start: 20100101

REACTIONS (4)
  - ABASIA [None]
  - DEVICE DIFFICULT TO USE [None]
  - INJECTION SITE PAIN [None]
  - LIGAMENT OPERATION [None]
